FAERS Safety Report 5756916-7 (Version None)
Quarter: 2008Q2

REPORT INFORMATION
  Report Type: 
  Country: None (occurrence: None)
  Receive Date: 20080603
  Receipt Date: 20080522
  Transmission Date: 20081010
  Serious: Yes (Hospitalization)
  Sender: FDA-Public Use
  Company Number: FR-GENENTECH-261862

PATIENT
  Sex: Male

DRUGS (5)
  1. MABTHERA [Suspect]
     Indication: SYSTEMIC LUPUS ERYTHEMATOSUS
     Dosage: 700 MG, UNK
     Dates: start: 20080325
  2. PLASMA-LYTE 56 AND DEXTROSE 5% IN PLASTIC CONTAINER [Concomitant]
     Indication: DRUG USE FOR UNKNOWN INDICATION
  3. ACETAMINOPHEN [Concomitant]
     Indication: DRUG USE FOR UNKNOWN INDICATION
  4. DESLORATADINE [Concomitant]
     Indication: DRUG USE FOR UNKNOWN INDICATION
  5. SOLU-MEDROL [Concomitant]
     Indication: DRUG USE FOR UNKNOWN INDICATION

REACTIONS (4)
  - ARTHRALGIA [None]
  - C-REACTIVE PROTEIN INCREASED [None]
  - PYREXIA [None]
  - SERUM SICKNESS [None]
